FAERS Safety Report 6485226-8 (Version None)
Quarter: 2009Q4

REPORT INFORMATION
  Report Type: 
  Country: None (occurrence: None)
  Receive Date: 20091203
  Receipt Date: 20091118
  Transmission Date: 20100525
  Serious: Yes (Hospitalization)
  Sender: FDA-Public Use
  Company Number: 2009AL007402

PATIENT
  Age: 90 Year
  Sex: Female

DRUGS (6)
  1. BISOPROLOL FUMARATE [Suspect]
     Dates: start: 20070501, end: 20090525
  2. TORASEMIDE [Concomitant]
  3. XIPAMIDE [Concomitant]
  4. GLIMEPIRIDE [Concomitant]
  5. OMEPRAZOLE [Concomitant]
  6. LISINOPRIL [Concomitant]

REACTIONS (1)
  - RENAL FAILURE ACUTE [None]
